FAERS Safety Report 13681729 (Version 1)
Quarter: 2017Q2

REPORT INFORMATION
  Report Type: Spontaneous
  Country: US (occurrence: US)
  Receive Date: 20170623
  Receipt Date: 20170623
  Transmission Date: 20170830
  Serious: No
  Sender: FDA-Public Use
  Company Number: US-IPSEN BIOPHARMACEUTICALS, INC.-2016-03763

PATIENT
  Age: 40 Year
  Sex: Female

DRUGS (6)
  1. DYSPORT [Suspect]
     Active Substance: ABOBOTULINUMTOXINA
     Indication: SKIN WRINKLING
  2. DYSPORT [Suspect]
     Active Substance: ABOBOTULINUMTOXINA
     Indication: SKIN WRINKLING
  3. DYSPORT [Suspect]
     Active Substance: ABOBOTULINUMTOXINA
     Indication: PRODUCT USE IN UNAPPROVED INDICATION
  4. AMPICILLIN [Concomitant]
     Active Substance: AMPICILLIN
     Dates: start: 20160419
  5. DYSPORT [Suspect]
     Active Substance: ABOBOTULINUMTOXINA
     Indication: SKIN WRINKLING
     Dosage: 100 UNITS
     Route: 065
     Dates: start: 20160408, end: 20160408
  6. LEXAPRO [Concomitant]
     Active Substance: ESCITALOPRAM OXALATE

REACTIONS (6)
  - Paranasal sinus discomfort [Unknown]
  - Eye swelling [Unknown]
  - Head discomfort [Unknown]
  - Blepharospasm [Unknown]
  - Eyelid ptosis [Unknown]
  - Overdose [Unknown]

NARRATIVE: CASE EVENT DATE: 20160425
